FAERS Safety Report 20545633 (Version 1)
Quarter: 2022Q1

REPORT INFORMATION
  Report Type: Other
  Country: CA (occurrence: CA)
  Receive Date: 20220303
  Receipt Date: 20220303
  Transmission Date: 20220423
  Serious: Yes (Other)
  Sender: FDA-Public Use
  Company Number: CA-APOTEX-2022AP003881

PATIENT
  Age: 66 Year
  Sex: Female
  Weight: 46 kg

DRUGS (1)
  1. RENFLEXIS [Suspect]
     Active Substance: INFLIXIMAB-ABDA
     Indication: Crohn^s disease
     Dosage: 600 MILLIGRAM (ONE EVERY FOUR WEEKS)
     Route: 065

REACTIONS (8)
  - Product use issue [Unknown]
  - Abdominal pain upper [Unknown]
  - Confusional state [Unknown]
  - Diarrhoea [Unknown]
  - Disturbance in attention [Unknown]
  - Nausea [Unknown]
  - Sinusitis [Unknown]
  - Vomiting [Unknown]
